FAERS Safety Report 15555434 (Version 2)
Quarter: 2018Q4

REPORT INFORMATION
  Report Type: Spontaneous
  Country: US (occurrence: US)
  Receive Date: 20181026
  Receipt Date: 20181207
  Transmission Date: 20190205
  Serious: No
  Sender: FDA-Public Use
  Company Number: US-ASTRAZENECA-2018SF28258

PATIENT
  Age: 2444 Week
  Sex: Female
  Weight: 122.5 kg

DRUGS (3)
  1. SYMBICORT [Suspect]
     Active Substance: BUDESONIDE\FORMOTEROL FUMARATE DIHYDRATE
     Indication: ASTHMA
     Dosage: 80/4.5 MCG, TWO TIMES A DAY, JAN, FEB OR MAR OF 2018
     Route: 055
  2. AMLODIPINE [Concomitant]
     Active Substance: AMLODIPINE BESYLATE
     Indication: BLOOD PRESSURE ABNORMAL
     Route: 048
     Dates: start: 2017
  3. IRBESARTAN. [Concomitant]
     Active Substance: IRBESARTAN
     Indication: BLOOD PRESSURE ABNORMAL
     Route: 048
     Dates: start: 2017

REACTIONS (6)
  - Dyspnoea [Unknown]
  - Intentional product misuse [Unknown]
  - Device malfunction [Unknown]
  - Cough [Unknown]
  - Drug effect decreased [Unknown]
  - Underdose [Unknown]

NARRATIVE: CASE EVENT DATE: 20180925
